FAERS Safety Report 10047005 (Version 2)
Quarter: 2014Q2

REPORT INFORMATION
  Report Type: Spontaneous
  Country: JP (occurrence: JP)
  Receive Date: 20140331
  Receipt Date: 20140414
  Transmission Date: 20141212
  Serious: Yes (Other)
  Sender: FDA-Public Use
  Company Number: JP-PFIZER INC-2014087440

PATIENT
  Age: 12 Year
  Sex: Male

DRUGS (4)
  1. METHYLPREDNISOLONE [Suspect]
     Indication: NEPHROTIC SYNDROME
  2. CICLOSPORIN [Suspect]
     Indication: NEPHROTIC SYNDROME
  3. PREDNISOLONE [Suspect]
     Indication: NEPHROTIC SYNDROME
  4. RITUXIMAB [Suspect]
     Indication: NEPHROTIC SYNDROME

REACTIONS (1)
  - Aspergillus infection [Recovered/Resolved]
